FAERS Safety Report 25509705 (Version 2)
Quarter: 2025Q3

REPORT INFORMATION
  Report Type: Spontaneous
  Country: EU (occurrence: EU)
  Receive Date: 20250703
  Receipt Date: 20250707
  Transmission Date: 20251020
  Serious: Yes (Hospitalization, Other)
  Sender: SANDOZ
  Company Number: EU-SANDOZ-SDZ2025DE046530

PATIENT
  Age: 73 Year
  Sex: Male

DRUGS (8)
  1. ASPIRIN [Concomitant]
     Active Substance: ASPIRIN
     Indication: Antiplatelet therapy
     Route: 065
  2. PRASUGREL [Concomitant]
     Active Substance: PRASUGREL
     Indication: Antiplatelet therapy
     Route: 065
  3. AZITHROMYCIN [Interacting]
     Active Substance: AZITHROMYCIN
     Indication: Atypical mycobacterial infection
     Route: 065
  4. ETHAMBUTOL [Interacting]
     Active Substance: ETHAMBUTOL HYDROCHLORIDE
     Indication: Mycobacterial infection
     Dosage: 2000 MG, QD
     Route: 065
  5. LEFLUNOMIDE [Interacting]
     Active Substance: LEFLUNOMIDE
     Indication: Rheumatoid arthritis
     Dosage: 20 MG, QD
     Route: 065
  6. METHOTREXATE [Interacting]
     Active Substance: METHOTREXATE
     Indication: Rheumatoid arthritis
     Dosage: 20 MG, QW FOR THE PAST YEARS
     Route: 065
  7. PREDNISOLONE [Interacting]
     Active Substance: PREDNISOLONE
     Indication: Rheumatoid arthritis
     Dosage: 10 MG, QD
     Route: 048
  8. RIFAMPIN [Interacting]
     Active Substance: RIFAMPIN
     Indication: Atypical mycobacterial infection
     Route: 065

REACTIONS (9)
  - Immune reconstitution inflammatory syndrome [Unknown]
  - Atypical mycobacterial infection [Unknown]
  - Infection in an immunocompromised host [Unknown]
  - Bone marrow failure [Unknown]
  - Renal impairment [Unknown]
  - Drug interaction [Unknown]
  - Vomiting [Recovered/Resolved]
  - Nausea [Recovered/Resolved]
  - Product use in unapproved indication [Unknown]
